FAERS Safety Report 9780849 (Version 2)
Quarter: 2013Q4

REPORT INFORMATION
  Report Type: Spontaneous
  Country: GB (occurrence: GB)
  Receive Date: 20131224
  Receipt Date: 20131224
  Transmission Date: 20140711
  Serious: Yes (Other)
  Sender: FDA-Public Use
  Company Number: PHFR2013GB006032

PATIENT
  Age: 26 Year
  Sex: Female

DRUGS (3)
  1. CLOZARIL [Suspect]
     Indication: SCHIZOPHRENIA, PARANOID TYPE
     Dosage: 400 MG DAILY
     Route: 048
     Dates: start: 201310
  2. LORAZEPAM [Concomitant]
     Indication: AGITATION
     Dosage: 4 MG PRN
     Route: 048
  3. OLANZAPINE [Concomitant]
     Indication: AGITATION
     Dosage: 5 MG, PRN
     Route: 048

REACTIONS (1)
  - Differential white blood cell count abnormal [Recovered/Resolved]
